FAERS Safety Report 21356480 (Version 1)
Quarter: 2022Q3

REPORT INFORMATION
  Report Type: Spontaneous
  Country: DK (occurrence: DK)
  Receive Date: 20220920
  Receipt Date: 20220920
  Transmission Date: 20221027
  Serious: Yes (Hospitalization)
  Sender: FDA-Public Use
  Company Number: None

PATIENT
  Age: 5 Decade
  Sex: Female

DRUGS (1)
  1. ATORVASTATIN CALCIUM [Suspect]
     Active Substance: ATORVASTATIN CALCIUM
     Indication: Hypercholesterolaemia
     Dosage: 40 MG, 1X/DAY
     Route: 048
     Dates: start: 20141022, end: 20170201

REACTIONS (6)
  - Blood creatine phosphokinase increased [Recovered/Resolved]
  - Pain in extremity [Unknown]
  - Rhabdomyolysis [Unknown]
  - Gait disturbance [Unknown]
  - Abdominal pain [Unknown]
  - Muscular weakness [Unknown]

NARRATIVE: CASE EVENT DATE: 20160101
